FAERS Safety Report 4767235-X (Version None)
Quarter: 2005Q3

REPORT INFORMATION
  Report Type: 
  Country: None (occurrence: None)
  Receive Date: 20050906
  Receipt Date: 20050511
  Transmission Date: 20060218
  Serious: No
  Sender: FDA-Public Use
  Company Number: 2005-BP-07984BP

PATIENT
  Age: 50 Year
  Sex: Male

DRUGS (9)
  1. SPIRIVA [Suspect]
     Indication: CHRONIC OBSTRUCTIVE PULMONARY DISEASE
     Dosage: 18 MCG (18 MCG,QD), IH
     Route: 055
     Dates: start: 20050101
  2. SPIRIVA [Suspect]
     Indication: LUNG TRANSPLANT
     Dosage: 18 MCG (18 MCG,QD), IH
     Route: 055
     Dates: start: 20050101
  3. SPIRIVA [Suspect]
  4. ADVAIR DISKUS 100/50 [Concomitant]
  5. ALBUTEROL [Concomitant]
  6. IPRATROPIUM BROMIDE [Concomitant]
  7. THEOPHYLLINE [Concomitant]
  8. HYDROCODONE (HYDROCODONE) [Concomitant]
  9. XANAX [Concomitant]

REACTIONS (4)
  - DIZZINESS [None]
  - DRUG INEFFECTIVE [None]
  - DYSPNOEA EXACERBATED [None]
  - SYNCOPE [None]
